FAERS Safety Report 23952890 (Version 1)
Quarter: 2024Q2

REPORT INFORMATION
  Report Type: Spontaneous
  Country: US (occurrence: US)
  Receive Date: 20240607
  Receipt Date: 20240607
  Transmission Date: 20240716
  Serious: No
  Sender: FDA-Public Use
  Company Number: US-BoehringerIngelheim-2024-BI-032695

PATIENT
  Sex: Female

DRUGS (1)
  1. OFEV [Suspect]
     Active Substance: NINTEDANIB
     Indication: Product used for unknown indication
     Dosage: DAILY DOSE: 150 MILLIGRAM(S)

REACTIONS (5)
  - Illness [Unknown]
  - Cough [Unknown]
  - Nasal congestion [Unknown]
  - Diarrhoea [Unknown]
  - Malaise [Unknown]
